FAERS Safety Report 9130827 (Version 1)
Quarter: 2013Q1

REPORT INFORMATION
  Report Type: Spontaneous
  Country: US (occurrence: US)
  Receive Date: 20130301
  Receipt Date: 20130301
  Transmission Date: 20140127
  Serious: Yes (Other)
  Sender: FDA-Public Use
  Company Number: PHEH2013US004948

PATIENT
  Sex: Female

DRUGS (7)
  1. VIVELLE DOT [Suspect]
     Indication: HORMONE REPLACEMENT THERAPY
     Dosage: TWICE A WEEK
     Route: 062
  2. VIVELLE DOT [Suspect]
     Dosage: 0.1 AND 0.05 (FOR A DAY) TILL 82 HOURS
     Route: 062
  3. PROMETRIUM [Concomitant]
     Dosage: UNK UKN, UNK
  4. TESTOSTERONE [Concomitant]
     Dosage: 0.2 UKN, UNK
  5. PLAVIX [Concomitant]
     Indication: ANTICOAGULANT THERAPY
     Dosage: 75 MG, UNK
  6. BYSTOLIC [Concomitant]
     Indication: HYPERTENSION
     Dosage: 5 MG, UNK
  7. PLAQUENIL [Concomitant]
     Dosage: UNK UKN, UNK

REACTIONS (6)
  - Staphylococcal infection [Unknown]
  - Cellulitis [Unknown]
  - Joint effusion [Unknown]
  - Rocky mountain spotted fever [Unknown]
  - Local swelling [Unknown]
  - Skin exfoliation [Unknown]
